FAERS Safety Report 6575982-2 (Version None)
Quarter: 2010Q1

REPORT INFORMATION
  Report Type: 
  Country: None (occurrence: None)
  Receive Date: 20100209
  Receipt Date: 20100114
  Transmission Date: 20100710
  Serious: No
  Sender: FDA-Public Use
  Company Number: A0837186A

PATIENT
  Age: 80 Year
  Sex: Female

DRUGS (5)
  1. HYCAMTIN [Suspect]
     Indication: OVARIAN CANCER
     Dosage: 3MG MONTHLY
     Route: 048
     Dates: start: 20090801
  2. ZOFRAN [Concomitant]
  3. ALDACTONE [Concomitant]
  4. PRINIVIL [Concomitant]
  5. CRESTOR [Concomitant]

REACTIONS (3)
  - HAEMATOMA [None]
  - RASH ERYTHEMATOUS [None]
  - RASH VESICULAR [None]
